FAERS Safety Report 6189235-8 (Version None)
Quarter: 2009Q2

REPORT INFORMATION
  Report Type: 
  Country: None (occurrence: None)
  Receive Date: 20090513
  Receipt Date: 20090506
  Transmission Date: 20091009
  Serious: Yes (Hospitalization, Other)
  Sender: FDA-Public Use
  Company Number: PHEH2007US12133

PATIENT
  Sex: Female

DRUGS (4)
  1. ZOMETA [Suspect]
     Dosage: 4MG MONTHLY
     Dates: end: 20050101
  2. AREDIA [Suspect]
     Dosage: 30MG
  3. PREDNISONE [Concomitant]
  4. AROMASIN [Concomitant]
     Dosage: UNK

REACTIONS (22)
  - ABDOMINAL PAIN [None]
  - ARTHRALGIA [None]
  - ASTHENIA [None]
  - BACK PAIN [None]
  - BONE OPERATION [None]
  - DECREASED APPETITE [None]
  - DEFORMITY [None]
  - DIZZINESS [None]
  - HAEMOPTYSIS [None]
  - INFECTION [None]
  - MAMMOPLASTY [None]
  - MEDICAL DEVICE REMOVAL [None]
  - METASTASES TO LIVER [None]
  - METASTASES TO SPINE [None]
  - NAUSEA [None]
  - NECK PAIN [None]
  - NEOPLASM MALIGNANT [None]
  - OSTEONECROSIS [None]
  - PAIN [None]
  - PAIN IN JAW [None]
  - VOMITING [None]
  - WEIGHT DECREASED [None]
